FAERS Safety Report 11011047 (Version 1)
Quarter: 2015Q2

REPORT INFORMATION
  Report Type: Spontaneous
  Country: US (occurrence: US)
  Receive Date: 20150410
  Receipt Date: 20150410
  Transmission Date: 20150821
  Serious: Yes (Other)
  Sender: FDA-Public Use
  Company Number: US-PFIZER INC-2015112592

PATIENT
  Age: 56 Year
  Sex: Female

DRUGS (13)
  1. MORPHINE SULFATE. [Suspect]
     Active Substance: MORPHINE SULFATE
     Dosage: UNK
     Route: 048
  2. DIPHENHYDRAMINE [Interacting]
     Active Substance: DIPHENHYDRAMINE
     Dosage: UNK
     Route: 048
  3. OXYCODONE/ACETAMINOPHEN [Interacting]
     Active Substance: ACETAMINOPHEN\OXYCODONE HYDROCHLORIDE
     Dosage: UNK
  4. PREDNISONE. [Interacting]
     Active Substance: PREDNISONE
     Dosage: UNK
     Route: 048
  5. FENTANYL. [Interacting]
     Active Substance: FENTANYL
     Indication: PAIN
     Dosage: UNK
     Route: 008
  6. HYDROCODONE BITARTRATE AND ACETAMINOPHEN [Interacting]
     Active Substance: ACETAMINOPHEN\HYDROCODONE BITARTRATE
  7. BUPIVACAINE [Interacting]
     Active Substance: BUPIVACAINE
     Indication: PAIN
     Dosage: UNK
     Route: 008
  8. HYDROMORPHONE [Interacting]
     Active Substance: HYDROMORPHONE
     Dosage: UNK
     Route: 042
  9. OXYCODONE [Interacting]
     Active Substance: OXYCODONE
     Dosage: UNK
     Route: 048
  10. SUFENTANIL [Interacting]
     Active Substance: SUFENTANIL
     Dosage: UNK
     Route: 042
  11. VICODIN [Interacting]
     Active Substance: ACETAMINOPHEN\HYDROCODONE BITARTRATE
     Indication: OSTEOARTHRITIS
     Dosage: UNK, 5/500 MG SIX TIMES DAILY FOR SEVERAL MONTHS
  12. NALOXONE [Interacting]
     Active Substance: NALOXONE
     Dosage: UNK
     Route: 042
  13. HYDROMORPHONE [Interacting]
     Active Substance: HYDROMORPHONE
     Dosage: UNK
     Route: 048

REACTIONS (4)
  - Drug interaction [Unknown]
  - Drug abuse [Unknown]
  - Drug ineffective [Unknown]
  - Somnolence [Unknown]
